FAERS Safety Report 10207823 (Version 1)
Quarter: 2014Q2

REPORT INFORMATION
  Report Type: Spontaneous
  Country: US (occurrence: US)
  Receive Date: 20140530
  Receipt Date: 20140530
  Transmission Date: 20141212
  Serious: No
  Sender: FDA-Public Use
  Company Number: US-GLAXOSMITHKLINE-A1061431A

PATIENT
  Age: 66 Year
  Sex: Male

DRUGS (7)
  1. VENTOLIN [Suspect]
     Indication: ASTHMA
     Dosage: 2PUFF SEE DOSAGE TEXT
     Route: 055
     Dates: start: 2006
  2. SYMBICORT [Concomitant]
  3. IPRATROPIUM [Concomitant]
  4. PREDNISONE [Concomitant]
  5. MONTELUKAST [Concomitant]
  6. ALBUTEROL NEBULIZER [Concomitant]
  7. MUCINEX [Concomitant]

REACTIONS (2)
  - Burning sensation [Recovered/Resolved]
  - Product quality issue [Unknown]
